FAERS Safety Report 12820830 (Version 1)
Quarter: 2016Q4

REPORT INFORMATION
  Report Type: Report from Study
  Country: US (occurrence: US)
  Receive Date: 20161007
  Receipt Date: 20161007
  Transmission Date: 20170207
  Serious: Yes (Life-Threatening, Hospitalization, Other)
  Sender: FDA-Public Use
  Company Number: US-ROCHE-1020337

PATIENT
  Age: 64 Year
  Sex: Male
  Weight: 106 kg

DRUGS (22)
  1. BEVACIZUMAB [Suspect]
     Active Substance: BEVACIZUMAB
     Dosage: COURSE:4
     Route: 042
     Dates: start: 20110119
  2. BEVACIZUMAB [Suspect]
     Active Substance: BEVACIZUMAB
     Indication: HEPATOCELLULAR CARCINOMA
     Dosage: LAST DOSE PRIOR TO SAE ON 09 NOV 2011, 10MG/ KG IV OVER 30-90 MIN ON DAYS 1 AND 15
     Route: 042
     Dates: start: 20101027
  3. BEVACIZUMAB [Suspect]
     Active Substance: BEVACIZUMAB
     Dosage: COURSE:3
     Route: 042
     Dates: start: 20101222
  4. BEVACIZUMAB [Suspect]
     Active Substance: BEVACIZUMAB
     Dosage: COURSE:6
     Route: 042
     Dates: start: 20110330
  5. BEVACIZUMAB [Suspect]
     Active Substance: BEVACIZUMAB
     Dosage: COURSE:13
     Route: 042
     Dates: start: 20111012
  6. BEVACIZUMAB [Suspect]
     Active Substance: BEVACIZUMAB
     Dosage: COURSE:18
     Route: 042
     Dates: start: 20120328
  7. TEMSIROLIMUS [Suspect]
     Active Substance: TEMSIROLIMUS
     Dosage: COURSE:2
     Route: 042
     Dates: start: 20101124
  8. BEVACIZUMAB [Suspect]
     Active Substance: BEVACIZUMAB
     Dosage: COURSE:8
     Route: 042
     Dates: start: 20110511
  9. BEVACIZUMAB [Suspect]
     Active Substance: BEVACIZUMAB
     Dosage: COURSE:14
     Route: 042
     Dates: start: 20111109
  10. BEVACIZUMAB [Suspect]
     Active Substance: BEVACIZUMAB
     Dosage: COURSE:5
     Route: 042
     Dates: start: 20110302
  11. BEVACIZUMAB [Suspect]
     Active Substance: BEVACIZUMAB
     Dosage: COURSE:12
     Route: 042
     Dates: start: 20110914
  12. TEMSIROLIMUS [Suspect]
     Active Substance: TEMSIROLIMUS
     Indication: HEPATOCELLULAR CARCINOMA
     Dosage: LAST DOSE PRIOR TO SAE ON 16 FEB 2011, 25MG IV ON DAYS 1,8, 15, 22
     Route: 042
     Dates: start: 20101027, end: 20110216
  13. BEVACIZUMAB [Suspect]
     Active Substance: BEVACIZUMAB
     Dosage: COURSE:7
     Route: 042
     Dates: start: 20110413
  14. BEVACIZUMAB [Suspect]
     Active Substance: BEVACIZUMAB
     Dosage: COURSE:10
     Route: 042
     Dates: start: 20110713
  15. BEVACIZUMAB [Suspect]
     Active Substance: BEVACIZUMAB
     Dosage: COURSE:15
     Route: 042
     Dates: start: 20111214
  16. BEVACIZUMAB [Suspect]
     Active Substance: BEVACIZUMAB
     Dosage: COURSE:2
     Route: 042
     Dates: start: 20101124
  17. BEVACIZUMAB [Suspect]
     Active Substance: BEVACIZUMAB
     Dosage: COURSE:16
     Route: 042
     Dates: start: 20120125
  18. BEVACIZUMAB [Suspect]
     Active Substance: BEVACIZUMAB
     Dosage: COURSE:17
     Route: 042
     Dates: start: 20120229
  19. BEVACIZUMAB [Suspect]
     Active Substance: BEVACIZUMAB
     Dosage: COURSE:11
     Route: 042
     Dates: start: 20110810
  20. TEMSIROLIMUS [Suspect]
     Active Substance: TEMSIROLIMUS
     Dosage: COURSE:4
     Route: 042
     Dates: start: 20110119
  21. BEVACIZUMAB [Suspect]
     Active Substance: BEVACIZUMAB
     Dosage: COURSE:9
     Route: 042
     Dates: start: 20110615
  22. TEMSIROLIMUS [Suspect]
     Active Substance: TEMSIROLIMUS
     Dosage: COURSE:3
     Route: 042
     Dates: start: 20101222

REACTIONS (14)
  - Hypokalaemia [Recovered/Resolved]
  - Confusional state [Unknown]
  - Fatigue [Unknown]
  - Syncope [Unknown]
  - Bone pain [Unknown]
  - Blood bilirubin increased [Unknown]
  - Neutrophil count decreased [Unknown]
  - Hypokalaemia [Unknown]
  - Hypotension [Unknown]
  - Hypertension [Unknown]
  - Depression [Recovered/Resolved]
  - Blood bilirubin increased [Recovered/Resolved]
  - Dehydration [Unknown]
  - Upper gastrointestinal haemorrhage [Unknown]

NARRATIVE: CASE EVENT DATE: 20111104
